FAERS Safety Report 13226112 (Version 1)
Quarter: 2017Q1

REPORT INFORMATION
  Report Type: Spontaneous
  Country: US (occurrence: US)
  Receive Date: 20170212
  Receipt Date: 20170212
  Transmission Date: 20170428
  Serious: Yes (Other)
  Sender: FDA-Public Use
  Company Number: None

PATIENT
  Age: 79 Year
  Sex: Male
  Weight: 76.5 kg

DRUGS (12)
  1. LIPITOR [Suspect]
     Active Substance: ATORVASTATIN CALCIUM
     Indication: BLOOD CHOLESTEROL INCREASED
     Dosage: ?          QUANTITY:1 TABLET(S);?
     Route: 048
     Dates: start: 20100207
  2. GABAPENTIN. [Concomitant]
     Active Substance: GABAPENTIN
  3. PLAVIX [Concomitant]
     Active Substance: CLOPIDOGREL BISULFATE
  4. TRAYENTA [Concomitant]
     Active Substance: LINAGLIPTIN
  5. LIPITOR [Suspect]
     Active Substance: ATORVASTATIN CALCIUM
     Indication: BLOOD TRIGLYCERIDES
     Dosage: ?          QUANTITY:1 TABLET(S);?
     Route: 048
     Dates: start: 20100207
  6. SPIRIVA [Concomitant]
     Active Substance: TIOTROPIUM BROMIDE MONOHYDRATE
  7. SYMBACORT [Concomitant]
  8. ADALAT [Concomitant]
     Active Substance: NIFEDIPINE
  9. CONCOR [Concomitant]
     Active Substance: BISOPROLOL FUMARATE
  10. VITAMIN C [Concomitant]
     Active Substance: ASCORBIC ACID
  11. MELATONIN [Concomitant]
     Active Substance: MELATONIN
  12. STILNOX [Concomitant]
     Active Substance: ZOLPIDEM TARTRATE

REACTIONS (2)
  - Rash [None]
  - Purpura [None]

NARRATIVE: CASE EVENT DATE: 20100207
